FAERS Safety Report 7782520-5 (Version None)
Quarter: 2011Q3

REPORT INFORMATION
  Report Type: 
  Country: None (occurrence: None)
  Receive Date: 20110928
  Receipt Date: 20110916
  Transmission Date: 20111222
  Serious: Yes (Life-Threatening, Hospitalization)
  Sender: FDA-Public Use
  Company Number: DK-ELI_LILLY_AND_COMPANY-DK201109006802

PATIENT
  Sex: Male

DRUGS (5)
  1. PANTOLOC                           /01263202/ [Concomitant]
  2. ABILIFY [Concomitant]
  3. METOPROLOL SUCCINATE [Concomitant]
  4. SIMVASTATIN [Concomitant]
  5. DULOXETINE HYDROCHLORIDE [Suspect]

REACTIONS (2)
  - PNEUMONIA [None]
  - NEUROLEPTIC MALIGNANT SYNDROME [None]
